FAERS Safety Report 7705787-8 (Version None)
Quarter: 2011Q3

REPORT INFORMATION
  Report Type: 
  Country: None (occurrence: None)
  Receive Date: 20110824
  Receipt Date: 20110824
  Transmission Date: 20111222
  Serious: Yes (Life-Threatening, Hospitalization, Other)
  Sender: FDA-Public Use
  Company Number: None

PATIENT
  Sex: Female
  Weight: 66.678 kg

DRUGS (2)
  1. FOSAMAX [Concomitant]
     Indication: OSTEOPOROSIS
     Dosage: 70 MG
     Route: 048
     Dates: start: 20090509, end: 20090709
  2. ACTONEL [Suspect]
     Indication: OSTEOPOROSIS
     Dosage: 150 MG
     Route: 048
     Dates: start: 20110506, end: 20110706

REACTIONS (9)
  - RETCHING [None]
  - OESOPHAGEAL SPASM [None]
  - NO THERAPEUTIC RESPONSE [None]
  - PAIN [None]
  - DRUG HYPERSENSITIVITY [None]
  - DYSPNOEA [None]
  - CHEST PAIN [None]
  - ABDOMINAL DISCOMFORT [None]
  - FOOD ALLERGY [None]
